FAERS Safety Report 14698481 (Version 4)
Quarter: 2019Q2

REPORT INFORMATION
  Report Type: Spontaneous
  Country: US (occurrence: US)
  Receive Date: 20180330
  Receipt Date: 20190412
  Transmission Date: 20190711
  Serious: Yes (Other)
  Sender: FDA-Public Use
  Company Number: US-ASTRAZENECA-2018SE37792

PATIENT
  Age: 18085 Day
  Sex: Female
  Weight: 67.1 kg

DRUGS (26)
  1. NEXIUM [Suspect]
     Active Substance: ESOMEPRAZOLE MAGNESIUM
     Route: 048
     Dates: start: 20030101, end: 20170101
  2. PREVACID [Suspect]
     Active Substance: LANSOPRAZOLE
     Dosage: 40 MG DAILY
     Route: 065
     Dates: start: 200301, end: 201701
  3. PREVACID [Suspect]
     Active Substance: LANSOPRAZOLE
     Route: 065
     Dates: start: 20030101, end: 20170101
  4. ATORVASTATIN [Concomitant]
     Active Substance: ATORVASTATIN
  5. PRILOSEC [Suspect]
     Active Substance: OMEPRAZOLE MAGNESIUM
     Route: 048
     Dates: start: 20030101, end: 20170101
  6. METOPROLOL SUCCINATE. [Concomitant]
     Active Substance: METOPROLOL SUCCINATE
  7. ISOSORBIDE. [Concomitant]
     Active Substance: ISOSORBIDE
  8. NEXIUM 24HR [Suspect]
     Active Substance: ESOMEPRAZOLE MAGNESIUM
     Dosage: 20 MG DAILY
     Route: 048
  9. PREVACID [Suspect]
     Active Substance: LANSOPRAZOLE
     Route: 065
     Dates: start: 200301, end: 201709
  10. PROTONIX [Suspect]
     Active Substance: PANTOPRAZOLE SODIUM
     Route: 065
     Dates: start: 20050917, end: 20070107
  11. AMLODIPINE [Concomitant]
     Active Substance: AMLODIPINE BESYLATE
  12. GLIPIZIDE. [Concomitant]
     Active Substance: GLIPIZIDE
  13. CYCLOBENZAPRINE. [Concomitant]
     Active Substance: CYCLOBENZAPRINE
  14. NEXIUM [Suspect]
     Active Substance: ESOMEPRAZOLE MAGNESIUM
     Dosage: 40.0MG UNKNOWN
     Route: 048
     Dates: start: 20080911
  15. PRILOSEC [Suspect]
     Active Substance: OMEPRAZOLE MAGNESIUM
     Route: 048
     Dates: start: 200301, end: 201709
  16. PRILOSEC OTC [Suspect]
     Active Substance: OMEPRAZOLE MAGNESIUM
     Dosage: 20 MG DAILY
     Route: 048
  17. PREVACID 24 HR [Suspect]
     Active Substance: LANSOPRAZOLE
  18. PREVACID [Suspect]
     Active Substance: LANSOPRAZOLE
     Dosage: 30.0MG UNKNOWN
     Route: 065
     Dates: start: 20071129
  19. PRILOSEC [Suspect]
     Active Substance: OMEPRAZOLE MAGNESIUM
     Route: 048
     Dates: start: 200301, end: 201701
  20. PROTONIX [Suspect]
     Active Substance: PANTOPRAZOLE SODIUM
     Route: 065
     Dates: start: 200301, end: 201701
  21. ENALAPRIL [Concomitant]
     Active Substance: ENALAPRIL
  22. CITALOPRAM [Concomitant]
     Active Substance: CITALOPRAM HYDROBROMIDE
  23. ASPIRIN. [Concomitant]
     Active Substance: ASPIRIN
  24. FUROSEMIDE. [Concomitant]
     Active Substance: FUROSEMIDE
  25. NEXIUM [Suspect]
     Active Substance: ESOMEPRAZOLE MAGNESIUM
     Dosage: 40 MG DAILY
     Route: 048
     Dates: start: 200301, end: 201709
  26. NEXIUM [Suspect]
     Active Substance: ESOMEPRAZOLE MAGNESIUM
     Route: 048
     Dates: start: 200301, end: 201701

REACTIONS (2)
  - Chronic kidney disease [Unknown]
  - Renal injury [Unknown]

NARRATIVE: CASE EVENT DATE: 20050918
